FAERS Safety Report 6676507-3 (Version None)
Quarter: 2010Q2

REPORT INFORMATION
  Report Type: 
  Country: None (occurrence: None)
  Receive Date: 20100412
  Receipt Date: 20100402
  Transmission Date: 20101027
  Serious: Yes (Death)
  Sender: FDA-Public Use
  Company Number: JP-BAYER-200911515BYL

PATIENT
  Age: 83 Year
  Sex: Male

DRUGS (12)
  1. NEXAVAR [Suspect]
     Indication: RENAL CELL CARCINOMA
     Dosage: TOTAL DAILY DOSE: 800 MG  UNIT DOSE: 200 MG
     Route: 048
     Dates: start: 20090416, end: 20090425
  2. ASPIRIN [Suspect]
     Indication: HYPERTENSION
     Route: 048
     Dates: start: 20090413, end: 20090427
  3. DOXAZOSIN MESYLATE [Concomitant]
     Indication: HYPERTENSION
     Route: 048
     Dates: start: 20090413, end: 20090427
  4. LASIX [Concomitant]
     Indication: POLYURIA
     Route: 042
     Dates: start: 20090424, end: 20090424
  5. LASIX [Concomitant]
     Dosage: TOTAL DAILY DOSE: 40 MG
     Route: 042
     Dates: start: 20090427, end: 20090427
  6. LASIX [Concomitant]
     Route: 048
     Dates: start: 20090413, end: 20090427
  7. ALOSITOL [Concomitant]
     Indication: HYPERURICAEMIA
     Route: 048
     Dates: start: 20090413, end: 20090427
  8. ITOROL [Concomitant]
     Indication: ANGINA PECTORIS
     Route: 048
     Dates: start: 20090413, end: 20090427
  9. MUCOSOLVAN [Concomitant]
     Indication: SPUTUM RETENTION
     Route: 048
     Dates: start: 20090413, end: 20090427
  10. SELBEX [Concomitant]
     Indication: GASTRITIS
     Route: 048
     Dates: start: 20090413, end: 20090427
  11. MAGLAX [Concomitant]
     Indication: GASTRITIS PROPHYLAXIS
     Route: 048
     Dates: start: 20090413, end: 20090427
  12. FAMOTIDINE [Concomitant]
     Indication: GASTRITIS PROPHYLAXIS
     Route: 048
     Dates: start: 20090414, end: 20090427

REACTIONS (3)
  - MELAENA [None]
  - RECTAL ULCER HAEMORRHAGE [None]
  - SHOCK HAEMORRHAGIC [None]
